FAERS Safety Report 8007135-5 (Version None)
Quarter: 2011Q4

REPORT INFORMATION
  Report Type: 
  Country: None (occurrence: None)
  Receive Date: 20111221
  Receipt Date: 20110811
  Transmission Date: 20120403
  Serious: No
  Sender: FDA-Public Use
  Company Number: AEIDN201100214

PATIENT

DRUGS (1)
  1. HYPERHEP B [Suspect]
     Indication: HEPATITIS B
     Dosage: IM
     Route: 030
     Dates: start: 20110617, end: 20110617

REACTIONS (1)
  - DRUG ADMINISTRATION ERROR [None]
